FAERS Safety Report 19713873 (Version 1)
Quarter: 2021Q3

REPORT INFORMATION
  Report Type: Spontaneous
  Country: US (occurrence: US)
  Receive Date: 20210817
  Receipt Date: 20210817
  Transmission Date: 20211014
  Serious: Yes (Other)
  Sender: FDA-Public Use
  Company Number: None

PATIENT
  Age: 44 Year
  Sex: Female
  Weight: 108 kg

DRUGS (1)
  1. ENOXAPARIN (ENOXAPARIN SODIUM) [Suspect]
     Active Substance: ENOXAPARIN SODIUM
     Indication: THROMBOSIS PROPHYLAXIS
     Route: 058
     Dates: start: 20210815

REACTIONS (3)
  - Injury associated with device [None]
  - Device issue [None]
  - Device breakage [None]

NARRATIVE: CASE EVENT DATE: 20210815
